FAERS Safety Report 8400592-1 (Version None)
Quarter: 2012Q2

REPORT INFORMATION
  Report Type: 
  Country: None (occurrence: None)
  Receive Date: 20120531
  Receipt Date: 20120523
  Transmission Date: 20120825
  Serious: Yes (Hospitalization)
  Sender: FDA-Public Use
  Company Number: CHPA2012JP011080

PATIENT

DRUGS (1)
  1. VOLTAREN [Suspect]
     Dosage: 10 X 50 MG TUBES IN ONE WEEK
     Route: 061

REACTIONS (2)
  - RENAL FUNCTION TEST ABNORMAL [None]
  - RENAL IMPAIRMENT [None]
